FAERS Safety Report 20786430 (Version 1)
Quarter: 2022Q2

REPORT INFORMATION
  Report Type: Spontaneous
  Country: LB (occurrence: LB)
  Receive Date: 20220504
  Receipt Date: 20220504
  Transmission Date: 20220721
  Serious: Yes (Hospitalization)
  Sender: FDA-Public Use
  Company Number: LB-STRIDES ARCOLAB LIMITED-2022SP004920

PATIENT
  Age: 56 Year
  Sex: Male
  Weight: 100 kg

DRUGS (1)
  1. METHOTREXATE [Suspect]
     Active Substance: METHOTREXATE
     Indication: Psoriasis
     Dosage: 2.5 MILLIGRAM, 2 TIMES A WEEK
     Route: 048

REACTIONS (3)
  - Varices oesophageal [Recovered/Resolved]
  - Hepatic cirrhosis [Recovered/Resolved]
  - Ascites [Recovered/Resolved]
